FAERS Safety Report 9159461 (Version 1)
Quarter: 2013Q1

REPORT INFORMATION
  Report Type: Spontaneous
  Country: FR (occurrence: FR)
  Receive Date: 20130313
  Receipt Date: 20130313
  Transmission Date: 20140127
  Serious: Yes (Life-Threatening, Hospitalization)
  Sender: FDA-Public Use
  Company Number: PHHY2013FR024082

PATIENT
  Age: 95 Year
  Sex: Male

DRUGS (10)
  1. EXELON [Suspect]
     Indication: VASCULAR DEMENTIA
     Dosage: 1.5 MG, BID
     Route: 048
     Dates: start: 20110721, end: 20130104
  2. GLUCOPHAGE [Concomitant]
     Dosage: 500 MG, QD
  3. APROVEL [Concomitant]
     Dosage: 150 MG, QD
  4. CHIBROPROSCAR [Concomitant]
     Dosage: 5 MG, QD
  5. INEXIUM//ESOMEPRAZOLE MAGNESIUM [Concomitant]
     Dosage: 20 MG, QD
  6. ZYLORIC [Concomitant]
     Dosage: 200 MG, QD
  7. DEROXAT [Concomitant]
     Dosage: 20 MG, QD
  8. MODOPAR [Concomitant]
     Dosage: 125 MG, TID
  9. LOXAPAC [Concomitant]
     Dosage: 8 GTT, BID
  10. KEPPRA [Concomitant]
     Dosage: 200 MG, BID

REACTIONS (3)
  - Cardiac arrest [Recovered/Resolved with Sequelae]
  - Bradycardia [Recovered/Resolved with Sequelae]
  - Atrioventricular block complete [Recovered/Resolved with Sequelae]
